FAERS Safety Report 16311364 (Version 2)
Quarter: 2019Q2

REPORT INFORMATION
  Report Type: Spontaneous
  Country: IT (occurrence: IT)
  Receive Date: 20190514
  Receipt Date: 20190523
  Transmission Date: 20190711
  Serious: Yes (Other)
  Sender: FDA-Public Use
  Company Number: IT-MYLANLABS-2019M1045196

PATIENT
  Age: 51 Year
  Sex: Male
  Weight: 100 kg

DRUGS (1)
  1. FROBEN [Suspect]
     Active Substance: FLURBIPROFEN
     Indication: PRODUCT USED FOR UNKNOWN INDICATION
     Dosage: 6 DOSAGE FORM, QD

REACTIONS (3)
  - Drug abuse [Recovering/Resolving]
  - Dyspnoea [Recovering/Resolving]
  - Intentional product misuse [Unknown]

NARRATIVE: CASE EVENT DATE: 20190214
